FAERS Safety Report 7234217-8 (Version None)
Quarter: 2011Q1

REPORT INFORMATION
  Report Type: 
  Country: None (occurrence: None)
  Receive Date: 20110119
  Receipt Date: 20110110
  Transmission Date: 20110831
  Serious: Yes (Other)
  Sender: FDA-Public Use
  Company Number: FR-ASTRAZENECA-2010SE60984

PATIENT
  Age: 54 Year
  Sex: Female

DRUGS (2)
  1. PARACETAMOL [Suspect]
     Indication: PAIN
     Route: 065
     Dates: end: 20101001
  2. IRESSA [Suspect]
     Indication: LUNG ADENOCARCINOMA
     Route: 048
     Dates: start: 20101001, end: 20101223

REACTIONS (1)
  - CYTOLYTIC HEPATITIS [None]
